FAERS Safety Report 7876945-7 (Version None)
Quarter: 2011Q4

REPORT INFORMATION
  Report Type: 
  Country: None (occurrence: None)
  Receive Date: 20111031
  Receipt Date: 20110804
  Transmission Date: 20120403
  Serious: Yes (Hospitalization)
  Sender: FDA-Public Use
  Company Number: PHHY2009SI68710

PATIENT
  Sex: Female

DRUGS (1)
  1. AMOXICILLIN AND CLAVULANATE POTASSIUM [Suspect]
     Indication: SKIN INFECTION
     Dosage: 1000 MG, BID
     Route: 048
     Dates: start: 20070101, end: 20070105

REACTIONS (3)
  - PRURITUS [None]
  - JAUNDICE [None]
  - LIVER INJURY [None]
